FAERS Safety Report 16947413 (Version 2)
Quarter: 2019Q4

REPORT INFORMATION
  Report Type: Spontaneous
  Country: DE (occurrence: DE)
  Receive Date: 20191022
  Receipt Date: 20191025
  Transmission Date: 20200122
  Serious: Yes (Hospitalization, Other)
  Sender: FDA-Public Use
  Company Number: DE-009507513-1910DEU012286

PATIENT
  Sex: Male

DRUGS (1)
  1. JANUMET [Suspect]
     Active Substance: METFORMIN HYDROCHLORIDE\SITAGLIPTIN PHOSPHATE
     Indication: DIABETES MELLITUS
     Dosage: 50/850 UNITS NOT REPORTED
     Route: 048
     Dates: start: 201810

REACTIONS (3)
  - Abdominal pain upper [Unknown]
  - Pancreatitis chronic [Unknown]
  - Adverse event [Unknown]

NARRATIVE: CASE EVENT DATE: 2019
